FAERS Safety Report 20244368 (Version 2)
Quarter: 2022Q3

REPORT INFORMATION
  Report Type: Spontaneous
  Country: CZ (occurrence: CZ)
  Receive Date: 20211229
  Receipt Date: 20220810
  Transmission Date: 20221027
  Serious: Yes (Life-Threatening, Hospitalization, Other)
  Sender: FDA-Public Use
  Company Number: None

PATIENT
  Age: 75 Year
  Sex: Female

DRUGS (8)
  1. KEVZARA [Suspect]
     Active Substance: SARILUMAB
     Indication: Rheumatoid arthritis
     Dosage: 150 MG
     Route: 058
     Dates: start: 20211007, end: 20211021
  2. KEVZARA [Suspect]
     Active Substance: SARILUMAB
     Dates: start: 20211007, end: 20211104
  3. KETOPROFEN [Concomitant]
     Active Substance: KETOPROFEN
     Dosage: 150 MG
  4. OMEPRAZOLE [Concomitant]
     Active Substance: OMEPRAZOLE
     Dosage: 20 MG
  5. METHOTREXATE SODIUM [Concomitant]
     Active Substance: METHOTREXATE SODIUM
     Dosage: 12.5 MG
  6. SIMPONI [Concomitant]
     Active Substance: GOLIMUMAB
     Dates: end: 20210903
  7. FOLIC ACID [Concomitant]
     Active Substance: FOLIC ACID
     Dosage: 10 MG
  8. CALTRATE [Concomitant]
     Active Substance: CALCIUM CARBONATE
     Dosage: 1 DF; 500/100 IUD

REACTIONS (6)
  - Colonic abscess [Unknown]
  - Pancytopenia [Unknown]
  - Sepsis [Unknown]
  - Bursitis infective [Unknown]
  - Diarrhoea [Unknown]
  - Genitourinary tract infection [Unknown]

NARRATIVE: CASE EVENT DATE: 20211111
